FAERS Safety Report 8579885-3 (Version None)
Quarter: 2012Q3

REPORT INFORMATION
  Report Type: 
  Country: None (occurrence: None)
  Receive Date: 20120808
  Receipt Date: 20120803
  Transmission Date: 20120928
  Serious: Yes (Hospitalization)
  Sender: FDA-Public Use
  Company Number: GB-ABBOTT-12P-167-0964428-00

PATIENT
  Sex: Female
  Weight: 100 kg

DRUGS (2)
  1. AZULFIDINE [Concomitant]
     Indication: PRODUCT USED FOR UNKNOWN INDICATION
  2. HUMIRA [Suspect]
     Indication: RHEUMATOID ARTHRITIS
     Route: 058
     Dates: start: 20051222

REACTIONS (7)
  - DYSPNOEA [None]
  - PLEURAL EFFUSION [None]
  - CHEST DISCOMFORT [None]
  - CAROTID ARTERIOSCLEROSIS [None]
  - CORONARY ARTERY DISEASE [None]
  - CARDIAC MYXOMA [None]
  - PALPITATIONS [None]
